FAERS Safety Report 14348278 (Version 4)
Quarter: 2018Q3

REPORT INFORMATION
  Report Type: Spontaneous
  Country: US (occurrence: US)
  Receive Date: 20180103
  Receipt Date: 20180704
  Transmission Date: 20181010
  Serious: No
  Sender: FDA-Public Use
  Company Number: US-PFIZER INC-2017553962

PATIENT
  Age: 60 Year
  Sex: Female

DRUGS (1)
  1. XELJANZ [Suspect]
     Active Substance: TOFACITINIB CITRATE
     Indication: RHEUMATOID ARTHRITIS
     Dosage: 5 MG (1 TABLET), TWICE DAILY
     Route: 048
     Dates: start: 201711

REACTIONS (6)
  - Feeling abnormal [Unknown]
  - Nasopharyngitis [Unknown]
  - Sinus congestion [Unknown]
  - Blood pressure decreased [Unknown]
  - Tooth infection [Unknown]
  - Infection [Unknown]

NARRATIVE: CASE EVENT DATE: 20171226
